FAERS Safety Report 5227077-8 (Version None)
Quarter: 2007Q1

REPORT INFORMATION
  Report Type: 
  Country: None (occurrence: None)
  Receive Date: 20070202
  Receipt Date: 20070123
  Transmission Date: 20070707
  Serious: Yes (Death, Hospitalization)
  Sender: FDA-Public Use
  Company Number: DE-AMGEN-UK208176

PATIENT
  Sex: Female

DRUGS (11)
  1. KINERET [Suspect]
     Indication: RHEUMATOID ARTHRITIS
     Route: 065
     Dates: start: 20030101, end: 20031001
  2. METHOTREXATE [Concomitant]
     Route: 065
     Dates: start: 20050601, end: 20060701
  3. IBUPROFEN [Concomitant]
     Route: 065
     Dates: start: 20000101
  4. PANTOZOL [Concomitant]
     Route: 065
  5. TRILEPTAL [Concomitant]
     Route: 065
  6. METOPROLOL TARTRATE [Concomitant]
     Route: 065
  7. AMLODIPINE [Concomitant]
     Route: 065
  8. SIMVASTATIN [Concomitant]
     Route: 065
  9. HYDROMORPHONE HCL [Concomitant]
     Route: 065
  10. FOSAMAX [Concomitant]
     Route: 065
  11. HYDROXYCHLOROQUINE SULFATE [Concomitant]
     Route: 065

REACTIONS (4)
  - BACK DISORDER [None]
  - DEATH [None]
  - ENTERITIS [None]
  - FEMORAL NECK FRACTURE [None]
